FAERS Safety Report 6354165-5 (Version None)
Quarter: 2009Q3

REPORT INFORMATION
  Report Type: 
  Country: None (occurrence: None)
  Receive Date: 20090914
  Receipt Date: 20090903
  Transmission Date: 20100115
  Serious: Yes (Hospitalization)
  Sender: FDA-Public Use
  Company Number: UY-ROCHE-646712

PATIENT
  Sex: Female
  Weight: 56 kg

DRUGS (5)
  1. METHOXY POLYETHYLENE GLYCOL-EPOETIN BETA [Suspect]
     Dosage: REPORTED FORM: VIAL.
     Route: 058
     Dates: start: 20080904
  2. ATORVASTATIN CALCIUM [Concomitant]
     Dates: start: 20070306
  3. ASCORBIC ACID [Concomitant]
     Dosage: TDD: 300 MG/WEEK.
     Dates: start: 20070213
  4. TRIFLUSAL [Concomitant]
     Dosage: REPORTED DRUG: TRIFUSAL
     Dates: start: 20070306
  5. DILTIAZEM [Concomitant]
     Dates: start: 20090701

REACTIONS (2)
  - PULMONARY OEDEMA [None]
  - VASCULAR ACCESS COMPLICATION [None]
